FAERS Safety Report 20732310 (Version 2)
Quarter: 2022Q2

REPORT INFORMATION
  Report Type: Spontaneous
  Country: US (occurrence: US)
  Receive Date: 20220420
  Receipt Date: 20220602
  Transmission Date: 20220721
  Serious: Yes (Other)
  Sender: FDA-Public Use
  Company Number: US-BAYER-2022A057886

PATIENT
  Age: 20 Year
  Sex: Female
  Weight: 72.109 kg

DRUGS (1)
  1. SKYLA [Suspect]
     Active Substance: LEVONORGESTREL
     Indication: Contraception
     Dosage: 14?G/DAY
     Route: 015
     Dates: start: 201908, end: 20220419

REACTIONS (2)
  - Pregnancy with contraceptive device [Recovered/Resolved]
  - Drug ineffective [None]

NARRATIVE: CASE EVENT DATE: 20220101
